FAERS Safety Report 21349170 (Version 9)
Quarter: 2024Q3

REPORT INFORMATION
  Report Type: Report from Study
  Country: US (occurrence: US)
  Receive Date: 20220919
  Receipt Date: 20240926
  Transmission Date: 20241016
  Serious: Yes (Hospitalization)
  Sender: GLAXOSMITHKLINE
  Company Number: US-GLAXOSMITHKLINE-US2022AMR088567

PATIENT

DRUGS (3)
  1. NIRAPARIB [Suspect]
     Active Substance: NIRAPARIB
     Indication: Ovarian cancer
     Dosage: 200 MG, QD, (2-100 MG CAPSULES)
     Route: 048
     Dates: start: 20220531
  2. NIRAPARIB [Suspect]
     Active Substance: NIRAPARIB
     Dosage: 100 MG, QD
     Route: 048
     Dates: start: 20220706
  3. NIRAPARIB [Suspect]
     Active Substance: NIRAPARIB
     Dosage: 100 MG, QD (1 CAPSULE)
     Route: 048
     Dates: start: 20220726

REACTIONS (16)
  - Appendicectomy [Recovered/Resolved]
  - Abdominal pain upper [Recovered/Resolved]
  - Vomiting [Recovered/Resolved]
  - Paraesthesia [Recovered/Resolved]
  - Photosensitivity reaction [Not Recovered/Not Resolved]
  - Condition aggravated [Not Recovered/Not Resolved]
  - Pain [Not Recovered/Not Resolved]
  - Dyspepsia [Recovering/Resolving]
  - Chest discomfort [Recovering/Resolving]
  - Skin burning sensation [Recovering/Resolving]
  - Platelet count decreased [Recovered/Resolved]
  - Arthralgia [Recovering/Resolving]
  - Back pain [Recovering/Resolving]
  - Pain in extremity [Recovering/Resolving]
  - Tendonitis [Not Recovered/Not Resolved]
  - Carbohydrate antigen 125 increased [Not Recovered/Not Resolved]

NARRATIVE: CASE EVENT DATE: 20230621
